FAERS Safety Report 23346951 (Version 2)
Quarter: 2024Q3

REPORT INFORMATION
  Report Type: Spontaneous
  Country: US (occurrence: US)
  Receive Date: 20231228
  Receipt Date: 20240826
  Transmission Date: 20241016
  Serious: No
  Sender: SANOFI AVENTIS
  Company Number: US-SA-2023SA403038

PATIENT
  Age: 9 Year
  Sex: Male

DRUGS (4)
  1. ALTUVIIIO [Suspect]
     Active Substance: EFANESOCTOCOG ALFA
     Dosage: 1750 U
     Route: 042
     Dates: start: 2023
  2. ALTUVIIIO [Suspect]
     Active Substance: EFANESOCTOCOG ALFA
     Dosage: 1750 U, BIW (FOR UPPER LIMB FRACTURE)
     Route: 042
     Dates: start: 202312
  3. ALTUVIIIO [Suspect]
     Active Substance: EFANESOCTOCOG ALFA
     Dosage: 1750 U, QW
     Route: 042
  4. ALTUVIIIO [Suspect]
     Active Substance: EFANESOCTOCOG ALFA
     Dosage: 1750 U, PRN
     Route: 042

REACTIONS (2)
  - Upper limb fracture [Unknown]
  - Central venous catheter removal [Unknown]

NARRATIVE: CASE EVENT DATE: 20231217
